FAERS Safety Report 19064399 (Version 1)
Quarter: 2021Q1

REPORT INFORMATION
  Report Type: Spontaneous
  Country: CN (occurrence: CN)
  Receive Date: 20210326
  Receipt Date: 20210326
  Transmission Date: 20210420
  Serious: Yes (Other)
  Sender: FDA-Public Use
  Company Number: CN-BAYER-2021-112691

PATIENT
  Age: 55 Year
  Sex: Female
  Weight: 47 kg

DRUGS (1)
  1. NEXAVAR [Suspect]
     Active Substance: SORAFENIB
     Indication: ACUTE MYELOID LEUKAEMIA
     Dosage: 0.2 G, BID
     Route: 048
     Dates: start: 20210223, end: 20210309

REACTIONS (7)
  - Graft versus host disease in skin [None]
  - Rash [None]
  - Off label use [None]
  - Peripheral swelling [Recovered/Resolved]
  - Flushing [None]
  - Blister [Recovered/Resolved]
  - Product use in unapproved indication [None]

NARRATIVE: CASE EVENT DATE: 20210223
